FAERS Safety Report 6436459-8 (Version None)
Quarter: 2009Q4

REPORT INFORMATION
  Report Type: 
  Country: None (occurrence: None)
  Receive Date: 20091110
  Receipt Date: 20080205
  Transmission Date: 20100525
  Serious: No
  Sender: FDA-Public Use
  Company Number: AEUSA200800023

PATIENT
  Age: 53 Year
  Sex: Female

DRUGS (5)
  1. GAMUNEX [Suspect]
     Indication: IMMUNODEFICIENCY COMMON VARIABLE
     Dosage: 50 GM; QM; IV
     Route: 042
     Dates: start: 20050101, end: 20071101
  2. CELEXA [Concomitant]
  3. FLOVENT [Concomitant]
  4. PRILOSEC [Concomitant]
  5. ALBUTEROL [Concomitant]

REACTIONS (5)
  - ASTHMA [None]
  - BLOOD IMMUNOGLOBULIN G DECREASED [None]
  - CONDITION AGGRAVATED [None]
  - RESPIRATORY TRACT INFECTION [None]
  - SINUSITIS [None]
